FAERS Safety Report 5895455-X (Version None)
Quarter: 2008Q3

REPORT INFORMATION
  Report Type: 
  Country: None (occurrence: None)
  Receive Date: 20080923
  Receipt Date: 20080923
  Transmission Date: 20090109
  Serious: Yes (Other)
  Sender: FDA-Public Use
  Company Number: None

PATIENT
  Sex: Female
  Weight: 105.2345 kg

DRUGS (2)
  1. DEPO-PROVERA [Suspect]
     Indication: CONTRACEPTION
     Dosage: 1 SHOT EVERY 3 MONTHS IM, APPROX. 8-9 YEARS
     Route: 030
  2. DEPO-PROVERA [Suspect]
     Indication: MENORRHAGIA
     Dosage: 1 SHOT EVERY 3 MONTHS IM, APPROX. 8-9 YEARS
     Route: 030

REACTIONS (6)
  - ARTHRALGIA [None]
  - ECONOMIC PROBLEM [None]
  - FIBROMYALGIA [None]
  - IMPAIRED WORK ABILITY [None]
  - MAJOR DEPRESSION [None]
  - WEIGHT INCREASED [None]
